FAERS Safety Report 5833882-7 (Version None)
Quarter: 2008Q3

REPORT INFORMATION
  Report Type: 
  Country: None (occurrence: None)
  Receive Date: 20080805
  Receipt Date: 20080728
  Transmission Date: 20090109
  Serious: Yes (Hospitalization, Congenital Anomaly)
  Sender: FDA-Public Use
  Company Number: A0687265A

PATIENT
  Sex: Male

DRUGS (2)
  1. PAXIL [Suspect]
     Indication: DEPRESSION
     Dosage: 20MG PER DAY
     Dates: start: 19970904, end: 20041113
  2. XANAX [Concomitant]
     Dates: start: 19850101

REACTIONS (7)
  - ABNORMAL BEHAVIOUR [None]
  - ADRENOGENITAL SYNDROME [None]
  - ATTENTION DEFICIT/HYPERACTIVITY DISORDER [None]
  - CONGENITAL FOOT MALFORMATION [None]
  - DRUG EXPOSURE DURING PREGNANCY [None]
  - HEART DISEASE CONGENITAL [None]
  - LIMB MALFORMATION [None]
